FAERS Safety Report 10032485 (Version 1)
Quarter: 2014Q1

REPORT INFORMATION
  Report Type: Spontaneous
  Country: US (occurrence: US)
  Receive Date: 20140324
  Receipt Date: 20140324
  Transmission Date: 20141002
  Serious: No
  Sender: FDA-Public Use
  Company Number: US-SHIONOGI, INC-2013000382

PATIENT
  Sex: 0

DRUGS (2)
  1. OSPHENA [Suspect]
     Indication: DYSPAREUNIA
     Dosage: UNK
     Route: 065
     Dates: start: 201311
  2. PROGESTIN [Concomitant]
     Indication: PRODUCT USED FOR UNKNOWN INDICATION
     Dosage: UNK UNK, QOD
     Route: 065

REACTIONS (3)
  - Nervousness [Not Recovered/Not Resolved]
  - Feeling hot [Not Recovered/Not Resolved]
  - Night sweats [Not Recovered/Not Resolved]
